FAERS Safety Report 19192124 (Version 3)
Quarter: 2024Q2

REPORT INFORMATION
  Report Type: Spontaneous
  Country: US (occurrence: US)
  Receive Date: 20210429
  Receipt Date: 20240614
  Transmission Date: 20240715
  Serious: No
  Sender: FDA-Public Use
  Company Number: US-GSKCCFUS-CASE-01036223_AE-61490

PATIENT
  Sex: Female

DRUGS (1)
  1. BENLYSTA [Suspect]
     Active Substance: BELIMUMAB
     Indication: Product used for unknown indication
     Dosage: UNK

REACTIONS (5)
  - Renal pain [Unknown]
  - Renal function test abnormal [Unknown]
  - Product distribution issue [Unknown]
  - Product storage error [Unknown]
  - Product dose omission issue [Unknown]
